FAERS Safety Report 5429542-7 (Version None)
Quarter: 2007Q3

REPORT INFORMATION
  Report Type: 
  Country: None (occurrence: None)
  Receive Date: 20070829
  Receipt Date: 20070629
  Transmission Date: 20080115
  Serious: No
  Sender: FDA-Public Use
  Company Number: A0661004A

PATIENT
  Age: 77 Year
  Sex: Female

DRUGS (5)
  1. BECONASE [Suspect]
     Dosage: 42MCG TWICE PER DAY
     Route: 045
     Dates: start: 19910501
  2. LEVOXYL [Concomitant]
  3. VERAPAMIL [Concomitant]
  4. CALCIUM [Concomitant]
  5. M.V.I. [Concomitant]

REACTIONS (1)
  - MENTAL IMPAIRMENT [None]
